FAERS Safety Report 24416622 (Version 2)
Quarter: 2024Q4

REPORT INFORMATION
  Report Type: Report from Study
  Country: US (occurrence: US)
  Receive Date: 20241009
  Receipt Date: 20241018
  Transmission Date: 20250115
  Serious: Yes (Other)
  Sender: ALEXION PHARMACEUTICALS
  Company Number: US-ALXN-202410USA002193US

PATIENT

DRUGS (4)
  1. STRENSIQ [Suspect]
     Active Substance: ASFOTASE ALFA
     Dosage: UNK
     Route: 065
  2. STRENSIQ [Suspect]
     Active Substance: ASFOTASE ALFA
     Dosage: UNK
  3. STRENSIQ [Suspect]
     Active Substance: ASFOTASE ALFA
     Dosage: UNK
     Route: 065
  4. STRENSIQ [Suspect]
     Active Substance: ASFOTASE ALFA
     Dosage: UNK

REACTIONS (17)
  - Injection site bruising [Unknown]
  - Injection site pain [Unknown]
  - Injection site pruritus [Unknown]
  - Insomnia [Unknown]
  - Bone pain [Unknown]
  - Lethargy [Unknown]
  - Pain [Unknown]
  - Tooth loss [Unknown]
  - Dental caries [Unknown]
  - Teeth brittle [Unknown]
  - Muscular weakness [Unknown]
  - Arthralgia [Unknown]
  - Myalgia [Unknown]
  - Fatigue [Unknown]
  - Weight gain poor [Unknown]
  - Gait disturbance [Unknown]
  - Amino acid level increased [Unknown]
